FAERS Safety Report 6884013-6 (Version None)
Quarter: 2010Q3

REPORT INFORMATION
  Report Type: 
  Country: None (occurrence: None)
  Receive Date: 20100729
  Receipt Date: 20100715
  Transmission Date: 20110219
  Serious: Yes (Other)
  Sender: FDA-Public Use
  Company Number: PHHY2010JP44807

PATIENT
  Age: 16 Year
  Sex: Male
  Weight: 40 kg

DRUGS (16)
  1. NEORAL [Suspect]
     Indication: EPSTEIN-BARR VIRUS INFECTION
     Dosage: 150 MG, DAILY
     Route: 048
     Dates: start: 20100101
  2. NEORAL [Suspect]
     Dosage: 75 MG DAILY
     Route: 048
  3. NEORAL [Suspect]
     Dosage: 100 MG, DAILY
     Route: 048
  4. NEORAL [Suspect]
     Dosage: 50 MG, DAILY
     Route: 048
  5. PREDNISOLONE [Concomitant]
     Indication: EPSTEIN-BARR VIRUS INFECTION
     Dosage: 50 MG
     Dates: start: 20090501
  6. PREDNISOLONE [Concomitant]
     Dosage: 40 MG
  7. PREDNISOLONE [Concomitant]
     Dosage: 35 MG
  8. PREDNISOLONE [Concomitant]
     Dosage: 50 MG
  9. ETOPOSIDE [Concomitant]
     Indication: EPSTEIN-BARR VIRUS INFECTION
     Dosage: 200 MG
     Route: 042
     Dates: start: 20100101
  10. PRAVASTATIN [Concomitant]
  11. LANSOPRAZOLE [Concomitant]
  12. FLUCONAZOLE [Concomitant]
  13. RISPERIDONE [Concomitant]
  14. ETIZOLAM [Concomitant]
  15. NIFEDIPINE [Concomitant]
  16. SULFAMETHOXAZOLE AND TRIMETHOPRIM [Concomitant]

REACTIONS (8)
  - ALANINE AMINOTRANSFERASE INCREASED [None]
  - ASPARTATE AMINOTRANSFERASE INCREASED [None]
  - EPSTEIN-BARR VIRUS INFECTION [None]
  - GAMMA-GLUTAMYLTRANSFERASE INCREASED [None]
  - IMMUNOSUPPRESSANT DRUG LEVEL DECREASED [None]
  - IMMUNOSUPPRESSANT DRUG LEVEL INCREASED [None]
  - LIVER DISORDER [None]
  - PYREXIA [None]
